FAERS Safety Report 9458330 (Version 1)
Quarter: 2013Q3

REPORT INFORMATION
  Report Type: Spontaneous
  Country: US (occurrence: None)
  Receive Date: 20130813
  Receipt Date: 20130813
  Transmission Date: 20140515
  Serious: Yes (Hospitalization)
  Sender: FDA-Public Use
  Company Number: None

PATIENT
  Age: 56 Year
  Sex: Male

DRUGS (1)
  1. ATRIPLA [Suspect]
     Indication: HIV INFECTION
     Dosage: 1 TABLET DAILY PO
     Route: 048
     Dates: start: 20120322, end: 20130630

REACTIONS (2)
  - Renal failure [None]
  - Systemic lupus erythematosus [None]
